FAERS Safety Report 6026130-9 (Version None)
Quarter: 2008Q4

REPORT INFORMATION
  Report Type: 
  Country: None (occurrence: None)
  Receive Date: 20081230
  Receipt Date: 20081216
  Transmission Date: 20090506
  Serious: Yes (Hospitalization, Disabling, Other)
  Sender: FDA-Public Use
  Company Number: URSO-2008-171

PATIENT
  Age: 75 Year
  Sex: Female

DRUGS (3)
  1. URSO FORTE [Suspect]
     Indication: BILIARY CIRRHOSIS PRIMARY
     Dosage: 1000 MG/DAY ORAL
     Route: 048
     Dates: start: 20070301, end: 20080301
  2. SYNTHROID [Concomitant]
  3. EVISTA [Concomitant]

REACTIONS (2)
  - GASTRIC MUCOSAL LESION [None]
  - WEIGHT DECREASED [None]
